FAERS Safety Report 14929870 (Version 2)
Quarter: 2018Q3

REPORT INFORMATION
  Report Type: Spontaneous
  Country: US (occurrence: US)
  Receive Date: 20180523
  Receipt Date: 20180727
  Transmission Date: 20181010
  Serious: Yes (Other)
  Sender: FDA-Public Use
  Company Number: US-ASTRAZENECA-2018SE62985

PATIENT
  Age: 17696 Day
  Sex: Female
  Weight: 62.6 kg

DRUGS (32)
  1. PREVACID [Suspect]
     Active Substance: LANSOPRAZOLE
     Indication: GASTROOESOPHAGEAL REFLUX DISEASE
     Route: 065
     Dates: start: 2001, end: 2017
  2. ZEGERID [Suspect]
     Active Substance: OMEPRAZOLE\SODIUM BICARBONATE
     Indication: GASTROOESOPHAGEAL REFLUX DISEASE
     Route: 065
     Dates: start: 2001, end: 2017
  3. DESIPRAMINE [Concomitant]
     Active Substance: DESIPRAMINE
     Dosage: 50.0MG UNKNOWN
     Dates: start: 19970917
  4. RISPERDAL [Concomitant]
     Active Substance: RISPERIDONE
     Dosage: 1.0MG UNKNOWN
     Dates: start: 19980708
  5. BIAXIN [Concomitant]
     Active Substance: CLARITHROMYCIN
     Dosage: 250.0MG UNKNOWN
     Dates: start: 19981118
  6. DIPHENOXYLATE/ATRO [Concomitant]
     Dates: start: 19991222
  7. PREVACID [Suspect]
     Active Substance: LANSOPRAZOLE
     Indication: GASTROOESOPHAGEAL REFLUX DISEASE
     Dosage: GENERIC
     Route: 065
  8. KETOPROFEN. [Concomitant]
     Active Substance: KETOPROFEN
     Dosage: 50.0MG UNKNOWN
     Dates: start: 20020523
  9. NEXIUM [Suspect]
     Active Substance: ESOMEPRAZOLE MAGNESIUM
     Indication: GASTROOESOPHAGEAL REFLUX DISEASE
     Dosage: GENERIC UNKNOWN
     Route: 048
  10. ZYRTEC [Concomitant]
     Active Substance: CETIRIZINE HYDROCHLORIDE
     Dosage: 10.0MG UNKNOWN
     Dates: start: 19970322
  11. PRENATAL [Concomitant]
     Active Substance: VITAMINS
     Dates: start: 19990529
  12. WELLBUTRIN [Concomitant]
     Active Substance: BUPROPION HYDROCHLORIDE
     Dosage: 150.0MG UNKNOWN
     Dates: start: 20020429
  13. KETOCONAZOLE. [Concomitant]
     Active Substance: KETOCONAZOLE
     Dosage: 200.0MG UNKNOWN
     Dates: start: 20020729
  14. PROVENTIL HFA [Concomitant]
     Active Substance: ALBUTEROL SULFATE
     Dosage: 6.7G UNKNOWN
     Dates: start: 19971009
  15. PAXIL [Concomitant]
     Active Substance: PAROXETINE HYDROCHLORIDE
     Dosage: 20.0MG UNKNOWN
     Dates: start: 19980708
  16. SOLAQUIN FORTE [Concomitant]
     Dosage: 29.37G UNKNOWN
     Dates: start: 19990216
  17. LAC?HYDRIN [Concomitant]
     Active Substance: AMMONIUM LACTATE
     Dosage: 280.0G UNKNOWN
     Dates: start: 19990216
  18. NEXIUM [Suspect]
     Active Substance: ESOMEPRAZOLE MAGNESIUM
     Indication: GASTROOESOPHAGEAL REFLUX DISEASE
     Dosage: 40.0MG UNKNOWN
     Route: 048
     Dates: start: 2001, end: 2017
  19. CELEXA [Concomitant]
     Active Substance: CITALOPRAM HYDROBROMIDE
     Dosage: 20.0MG UNKNOWN
     Dates: start: 20000811
  20. TUMS [Concomitant]
     Active Substance: CALCIUM CARBONATE
  21. METRONIDAZOLE. [Concomitant]
     Active Substance: METRONIDAZOLE
     Dosage: 500.0MG UNKNOWN
     Dates: start: 19960416
  22. TERAZOL [Concomitant]
     Active Substance: TERCONAZOLE
     Dates: start: 19961126
  23. BACTROBAN CR [Concomitant]
     Dosage: 15.0G UNKNOWN
     Dates: start: 19980811
  24. BIAXIN [Concomitant]
     Active Substance: CLARITHROMYCIN
     Dosage: 500.0MG UNKNOWN
     Dates: start: 20000818
  25. SINGULAIR [Concomitant]
     Active Substance: MONTELUKAST SODIUM
     Dosage: 10.0MG UNKNOWN
     Dates: start: 20020501
  26. NABUMETONE. [Concomitant]
     Active Substance: NABUMETONE
     Dosage: 500.0MG UNKNOWN
     Dates: start: 20021011
  27. NEXIUM [Suspect]
     Active Substance: ESOMEPRAZOLE MAGNESIUM
     Indication: GASTROOESOPHAGEAL REFLUX DISEASE
     Dosage: 40.0MG UNKNOWN
     Route: 048
     Dates: start: 20020429
  28. PEPCID [Concomitant]
     Active Substance: FAMOTIDINE
     Dates: start: 2015, end: 2017
  29. IBUPROFEN. [Concomitant]
     Active Substance: IBUPROFEN
     Dosage: 800.0MG UNKNOWN
     Dates: start: 19951214
  30. DEPAKOTE [Concomitant]
     Active Substance: DIVALPROEX SODIUM
     Dosage: 250.0MG UNKNOWN
     Dates: start: 19970917
  31. SEREVENT DISKUS [Concomitant]
     Active Substance: SALMETEROL XINAFOATE
     Dosage: 13.0G UNKNOWN
     Dates: start: 19971009
  32. RELAFEN [Concomitant]
     Active Substance: NABUMETONE
     Dosage: 500.0MG UNKNOWN
     Dates: start: 20010109

REACTIONS (3)
  - Chronic kidney disease [Unknown]
  - Renal failure [Not Recovered/Not Resolved]
  - Hypertension [Not Recovered/Not Resolved]

NARRATIVE: CASE EVENT DATE: 20130529
